FAERS Safety Report 4482045-9 (Version None)
Quarter: 2004Q4

REPORT INFORMATION
  Report Type: 
  Country: None (occurrence: None)
  Receive Date: 20041020
  Receipt Date: 20041001
  Transmission Date: 20050328
  Serious: Yes (Death, Other)
  Sender: FDA-Public Use
  Company Number: USA040977031

PATIENT
  Age: 60 Year
  Sex: Female

DRUGS (19)
  1. XIGRIS [Suspect]
     Indication: SEPSIS
     Dosage: 24 UG/KG/HR
     Dates: start: 20040823, end: 20040827
  2. ALBUMIN (HUMAN) [Concomitant]
  3. ZOSYN [Concomitant]
  4. ZOSYN [Concomitant]
  5. PROCRIT [Concomitant]
  6. CEFEPIME [Concomitant]
  7. BUMEX [Concomitant]
  8. FLAGYL (METRONIDAZOLE BENZOATE) [Concomitant]
  9. MAGNESIUM W/POTASSIUM [Concomitant]
  10. LEVOPHED [Concomitant]
  11. SODIUM CHLORIDE 0.9% [Concomitant]
  12. D5LRS [Concomitant]
  13. COMBIVENT [Concomitant]
  14. TPN [Concomitant]
  15. ROCEPHIN [Concomitant]
  16. REGULAR INSULIN [Concomitant]
  17. PROTONIX [Concomitant]
  18. FLOVENT [Concomitant]
  19. DOPAMINE HCL [Concomitant]

REACTIONS (12)
  - ACTIVATED PARTIAL THROMBOPLASTIN TIME PROLONGED [None]
  - COMA [None]
  - DEPRESSED LEVEL OF CONSCIOUSNESS [None]
  - GENERAL PHYSICAL HEALTH DETERIORATION [None]
  - HAEMORRHAGE INTRACRANIAL [None]
  - LUNG INFECTION PSEUDOMONAL [None]
  - MYDRIASIS [None]
  - PLATELET COUNT DECREASED [None]
  - PUPILLARY REFLEX IMPAIRED [None]
  - RENAL FAILURE ACUTE [None]
  - RENAL TUBULAR NECROSIS [None]
  - SEPTIC SHOCK [None]
